FAERS Safety Report 9160869 (Version 2)
Quarter: 2013Q1

REPORT INFORMATION
  Report Type: Spontaneous
  Country: US (occurrence: None)
  Receive Date: 20130215
  Receipt Date: 20130228
  Transmission Date: 20140127
  Serious: Yes (Other)
  Sender: FDA-Public Use
  Company Number: ACO_34150_2013

PATIENT
  Sex: Male
  Weight: 90.7 kg

DRUGS (7)
  1. AMPYRA (DALFAMPRIDINE) TABLET, 10MG [Suspect]
     Indication: GAIT DISTURBANCE
     Route: 048
     Dates: start: 2008
  2. NORTRIPTYLINE (NORTRIPTYLINE) [Concomitant]
  3. BACLOFEN (BACLOFEN) (BACLOFEN) [Concomitant]
  4. NAMENDA (MEMANTINE HYDROCHLORIDE) [Concomitant]
  5. PROVIGIL (MODAFINIL) [Concomitant]
  6. NOVANTRONE (MITOXANTRONE HYDROCHLORIDE) [Concomitant]
  7. LEXAPRO (ESCITALOPRAM OXALATE) [Concomitant]

REACTIONS (3)
  - Convulsion [None]
  - Inappropriate schedule of drug administration [None]
  - Drug prescribing error [None]
